FAERS Safety Report 16117840 (Version 1)
Quarter: 2019Q1

REPORT INFORMATION
  Report Type: Report from Study
  Country: DE (occurrence: DE)
  Receive Date: 20190326
  Receipt Date: 20190326
  Transmission Date: 20190418
  Serious: Yes (Hospitalization)
  Sender: FDA-Public Use
  Company Number: DE-ROCHE-2287458

PATIENT
  Age: 78 Year
  Sex: Female

DRUGS (5)
  1. PEGYLATED LIPOSOMAL DOXORUBICIN [Suspect]
     Active Substance: DOXORUBICIN
     Indication: OVARIAN CANCER
     Dosage: DATE OF MOST RECENT DOSE OF PEGYLATED LIPOSOMAL DOXORUBICIN PRIOR TO THE ONSET OF TREMOR: 13/FEB/201
     Route: 042
     Dates: start: 20181119
  2. BEVACIZUMAB. [Suspect]
     Active Substance: BEVACIZUMAB
     Indication: OVARIAN CANCER
     Dosage: DATE OF MOST RECENT DOSE OF BEVACIZUMAB PRIOR TO THE ONSET OF TREMOR: 16/JAN/2018
     Route: 042
     Dates: start: 20181205
  3. CARBOPLATIN. [Suspect]
     Active Substance: CARBOPLATIN
     Indication: OVARIAN CANCER
     Dosage: AT A DOSE TO ACHIEVE THE AREA UNDER THE CONCENTRATION TIME CURVE (AUC) OF 5?DATE OF MOST RECENT DOSE
     Route: 042
     Dates: start: 20181119
  4. RAMIPRIL. [Concomitant]
     Active Substance: RAMIPRIL
  5. ATEZOLIZUMAB. [Suspect]
     Active Substance: ATEZOLIZUMAB
     Indication: OVARIAN CANCER
     Dosage: DATE OF MOST RECENT DOSE OF ATEZOLIZUMAB PRIOR TO THE ONSET OF TREMOR: 27/FEB/2019
     Route: 042
     Dates: start: 20181119

REACTIONS (1)
  - Tremor [Recovered/Resolved]

NARRATIVE: CASE EVENT DATE: 20190305
